FAERS Safety Report 9452465 (Version 1)
Quarter: 2013Q3

REPORT INFORMATION
  Report Type: Spontaneous
  Country: US (occurrence: None)
  Receive Date: 20130808
  Receipt Date: 20130808
  Transmission Date: 20140515
  Serious: Yes (Life-Threatening)
  Sender: FDA-Public Use
  Company Number: None

PATIENT
  Age: 65 Year
  Sex: Male
  Weight: 89.36 kg

DRUGS (7)
  1. ROCURONIUM [Suspect]
     Indication: INDUCTION OF ANAESTHESIA
     Dates: start: 20130805, end: 20130805
  2. CLINDAMYCIN [Suspect]
     Route: 042
     Dates: start: 20130805, end: 20130805
  3. SOLU-CORTEF [Concomitant]
  4. MIDAZOLAM [Concomitant]
  5. PROPOFOL [Concomitant]
  6. FENTANYL [Concomitant]
  7. LIDOCAINE [Concomitant]

REACTIONS (3)
  - Urticaria [None]
  - Pulse absent [None]
  - Respiration abnormal [None]
